FAERS Safety Report 17693120 (Version 3)
Quarter: 2020Q2

REPORT INFORMATION
  Report Type: Spontaneous
  Country: US (occurrence: US)
  Receive Date: 20200422
  Receipt Date: 20200629
  Transmission Date: 20200714
  Serious: Yes (Other)
  Sender: FDA-Public Use
  Company Number: US-PFIZER INC-2020158119

PATIENT
  Age: 72 Year
  Sex: Female
  Weight: 83.91 kg

DRUGS (4)
  1. INLYTA [Suspect]
     Active Substance: AXITINIB
     Dosage: 5 MG, DAILY
     Dates: start: 20200411, end: 20200411
  2. INLYTA [Suspect]
     Active Substance: AXITINIB
     Dosage: 6 MG, DAILY (3, 1 MG TABLETS IN THE MORNING BY MOUTH AND 3, 1 MG TABLETS BY MOUTH 12 HOURS LATER)
     Route: 048
     Dates: start: 20200415, end: 20200415
  3. INLYTA [Suspect]
     Active Substance: AXITINIB
     Indication: RENAL CELL CARCINOMA
     Dosage: 5 MG, 2X/DAY, 12 HOURS APART
     Route: 048
     Dates: start: 20200408
  4. INLYTA [Suspect]
     Active Substance: AXITINIB
     Indication: NEOPLASM MALIGNANT
     Dosage: 2 MG, 2X/DAY
     Route: 048
     Dates: start: 20200403

REACTIONS (2)
  - Hypertension [Recovered/Resolved]
  - Intentional dose omission [Unknown]

NARRATIVE: CASE EVENT DATE: 20200411
